FAERS Safety Report 6450681-6 (Version None)
Quarter: 2009Q4

REPORT INFORMATION
  Report Type: 
  Country: None (occurrence: None)
  Receive Date: 20091123
  Receipt Date: 20091110
  Transmission Date: 20100525
  Serious: Yes (Other)
  Sender: FDA-Public Use
  Company Number: BR-ELI_LILLY_AND_COMPANY-BR200911002669

PATIENT
  Sex: Female
  Weight: 54 kg

DRUGS (4)
  1. FORTEO [Suspect]
     Indication: OSTEOPOROSIS
     Dosage: 20 UG, DAILY (1/D)
     Route: 065
     Dates: start: 20091027, end: 20091110
  2. NATRILIX [Concomitant]
     Dosage: UNK, DAILY (1/D)
     Route: 065
  3. CALTREN [Concomitant]
     Dosage: UNK, DAILY (1/D)
  4. GEROVITAL [Concomitant]

REACTIONS (7)
  - BONE PAIN [None]
  - DIZZINESS [None]
  - FALL [None]
  - GAIT DISTURBANCE [None]
  - PYREXIA [None]
  - SYNCOPE [None]
  - VOMITING [None]
